FAERS Safety Report 10483955 (Version 1)
Quarter: 2014Q3

REPORT INFORMATION
  Report Type: Spontaneous
  Country: US (occurrence: None)
  Receive Date: 20140929
  Receipt Date: 20140929
  Transmission Date: 20150326
  Serious: No
  Sender: FDA-Public Use
  Company Number: None

PATIENT
  Age: 11 Year
  Sex: Female
  Weight: 42.64 kg

DRUGS (2)
  1. ZOFRAN [Suspect]
     Active Substance: ONDANSETRON HYDROCHLORIDE
     Indication: VOMITING
     Dosage: 1 PILL AS NEEDED TAKEN BY MOUTH
     Route: 048
  2. ZOFRAN [Suspect]
     Active Substance: ONDANSETRON HYDROCHLORIDE
     Indication: NAUSEA
     Dosage: 1 PILL AS NEEDED TAKEN BY MOUTH
     Route: 048

REACTIONS (11)
  - Dyspnoea [None]
  - Muscle twitching [None]
  - Convulsion [None]
  - Back pain [None]
  - Dyskinesia [None]
  - Vision blurred [None]
  - Paraesthesia [None]
  - Hyperventilation [None]
  - Hypoaesthesia [None]
  - Mydriasis [None]
  - Muscle rigidity [None]

NARRATIVE: CASE EVENT DATE: 20140921
